FAERS Safety Report 23845193 (Version 1)
Quarter: 2024Q2

REPORT INFORMATION
  Report Type: Spontaneous
  Country: US (occurrence: US)
  Receive Date: 20240511
  Receipt Date: 20240511
  Transmission Date: 20240716
  Serious: No
  Sender: FDA-Public Use
  Company Number: US-CIPLA LTD.-2023US05627

PATIENT

DRUGS (3)
  1. ALBUTEROL [Suspect]
     Active Substance: ALBUTEROL
     Indication: Dyspnoea
     Dosage: UNK (1.5 YEARS AGO)
     Route: 065
     Dates: start: 2022
  2. ALBUTEROL [Suspect]
     Active Substance: ALBUTEROL
     Dosage: UNK
     Route: 065
     Dates: start: 202308
  3. ALBUTEROL [Suspect]
     Active Substance: ALBUTEROL
     Dosage: UNK
     Route: 065
     Dates: start: 202308

REACTIONS (5)
  - Dyspnoea [Not Recovered/Not Resolved]
  - Device delivery system issue [Unknown]
  - Product cleaning inadequate [Unknown]
  - Product quality issue [Unknown]
  - Device mechanical issue [Unknown]

NARRATIVE: CASE EVENT DATE: 20230101
